FAERS Safety Report 4508890-9 (Version None)
Quarter: 2004Q4

REPORT INFORMATION
  Report Type: 
  Country: None (occurrence: None)
  Receive Date: 20041122
  Receipt Date: 20041122
  Transmission Date: 20050328
  Serious: Yes (Life-Threatening)
  Sender: FDA-Public Use
  Company Number: None

PATIENT

DRUGS (1)
  1. ALTEPLASE   100MG [Suspect]
     Indication: CEREBROVASCULAR ACCIDENT
     Dosage: 100MG  ONE TIME INTRAVENOUS
     Route: 042
     Dates: start: 20041117, end: 20041117

REACTIONS (2)
  - ANAPHYLACTOID REACTION [None]
  - INFUSION RELATED REACTION [None]
